FAERS Safety Report 25406214 (Version 3)
Quarter: 2025Q2

REPORT INFORMATION
  Report Type: Spontaneous
  Country: US (occurrence: US)
  Receive Date: 20250606
  Receipt Date: 20250630
  Transmission Date: 20250716
  Serious: No
  Sender: CHATTEM
  Company Number: US-OPELLA-2025OHG017029

PATIENT
  Sex: Female

DRUGS (2)
  1. ALLEGRA ALLERGY [Suspect]
     Active Substance: FEXOFENADINE HYDROCHLORIDE
     Indication: Urticaria
  2. TUMS [Suspect]
     Active Substance: CALCIUM CARBONATE
     Indication: Urticaria

REACTIONS (5)
  - Lip swelling [Unknown]
  - Swelling face [Unknown]
  - Drug ineffective [Unknown]
  - Overdose [Unknown]
  - Drug interaction [Unknown]
